FAERS Safety Report 17016153 (Version 1)
Quarter: 2019Q4

REPORT INFORMATION
  Report Type: Spontaneous
  Country: US (occurrence: US)
  Receive Date: 20191111
  Receipt Date: 20191111
  Transmission Date: 20200122
  Serious: No
  Sender: FDA-Public Use
  Company Number: US-PFIZER INC-2019361983

PATIENT
  Age: 42 Year
  Sex: Female

DRUGS (1)
  1. METHOTREXATE SODIUM. [Suspect]
     Active Substance: METHOTREXATE SODIUM
     Dosage: UNK

REACTIONS (9)
  - Epistaxis [Unknown]
  - Arthropathy [Unknown]
  - Loss of personal independence in daily activities [Unknown]
  - Headache [Unknown]
  - Arthralgia [Unknown]
  - Nausea [Unknown]
  - Drug intolerance [Unknown]
  - Fatigue [Unknown]
  - Neck pain [Unknown]
